FAERS Safety Report 11492436 (Version 1)
Quarter: 2015Q3

REPORT INFORMATION
  Report Type: Spontaneous
  Country: PL (occurrence: PL)
  Receive Date: 20150910
  Receipt Date: 20150910
  Transmission Date: 20151125
  Serious: Yes (Life-Threatening)
  Sender: FDA-Public Use
  Company Number: PL-CONCORDIA PHARMACEUTICALS INC.-CO-ZF-PL-2015-013

PATIENT
  Age: 60 Year
  Sex: Male
  Weight: 70 kg

DRUGS (1)
  1. ZINACEF [Suspect]
     Active Substance: CEFUROXIME SODIUM
     Indication: PREOPERATIVE CARE
     Dates: start: 20150305, end: 20150305

REACTIONS (3)
  - Stridor [Recovered/Resolved]
  - Rash generalised [Recovered/Resolved]
  - Rash papular [Recovered/Resolved]

NARRATIVE: CASE EVENT DATE: 20150305
